FAERS Safety Report 6383856-5 (Version None)
Quarter: 2009Q3

REPORT INFORMATION
  Report Type: 
  Country: None (occurrence: None)
  Receive Date: 20090929
  Receipt Date: 20090929
  Transmission Date: 20100115
  Serious: Yes (Hospitalization)
  Sender: FDA-Public Use
  Company Number: None

PATIENT
  Age: 25 Year
  Sex: Female
  Weight: 80.7403 kg

DRUGS (2)
  1. BUPROPION HYDROCHLORIDE [Suspect]
     Indication: ANXIETY DISORDER
     Dosage: 150 MG TWICE DAILY PO
     Route: 048
     Dates: start: 20090829, end: 20090925
  2. BUPROPION HYDROCHLORIDE [Suspect]
     Indication: DEPRESSION
     Dosage: 150 MG TWICE DAILY PO
     Route: 048
     Dates: start: 20090829, end: 20090925

REACTIONS (5)
  - AMNESIA [None]
  - CONVULSION [None]
  - HEAD INJURY [None]
  - NODULE [None]
  - TONGUE BITING [None]
